FAERS Safety Report 4292327-1 (Version None)
Quarter: 2004Q1

REPORT INFORMATION
  Report Type: 
  Country: None (occurrence: None)
  Receive Date: 20040126
  Receipt Date: 20030903
  Transmission Date: 20041129
  Serious: No
  Sender: FDA-Public Use
  Company Number: USA030946119

PATIENT
  Age: 82 Year
  Sex: Female
  Weight: 49 kg

DRUGS (1)
  1. FORTEO [Suspect]
     Dates: start: 20030701

REACTIONS (2)
  - NAUSEA [None]
  - WEIGHT DECREASED [None]
